FAERS Safety Report 18628665 (Version 1)
Quarter: 2020Q4

REPORT INFORMATION
  Report Type: Not Available
  Country: None (occurrence: None)
  Receive Date: 20201217
  Receipt Date: 20201217
  Transmission Date: 20210114
  Serious: No
  Sender: FDA-Public Use
  Company Number: US-AKORN PHARMACEUTICALS-2020AKN00809

PATIENT
  Age: 21 Year
  Sex: Male
  Weight: 75 kg

DRUGS (1)
  1. MYORISAN [Suspect]
     Active Substance: ISOTRETINOIN

REACTIONS (8)
  - Aspartate aminotransferase increased [Unknown]
  - Alanine aminotransferase increased [Unknown]
  - Protein total increased [Recovered/Resolved]
  - Off label use [Recovered/Resolved]
  - Blood chloride increased [Unknown]
  - Globulins increased [Unknown]
  - Blood triglycerides increased [Recovered/Resolved]
  - Blood glucose decreased [Recovered/Resolved]
